FAERS Safety Report 8496819-0 (Version None)
Quarter: 2012Q3

REPORT INFORMATION
  Report Type: 
  Country: None (occurrence: None)
  Receive Date: 20120709
  Receipt Date: 20120704
  Transmission Date: 20120928
  Serious: Yes (Hospitalization, Other)
  Sender: FDA-Public Use
  Company Number: DE-PFIZER INC-2012139364

PATIENT
  Age: 50 Year
  Sex: Female
  Weight: 58 kg

DRUGS (4)
  1. SEROQUEL [Suspect]
     Dosage: UNK
  2. VENLAFAXINE HCL [Suspect]
     Dosage: 2100 MG (7X300MG), SINGLE
     Dates: start: 20120606, end: 20120606
  3. VENLAFAXINE HCL [Suspect]
     Dosage: UNK
  4. SEROQUEL [Suspect]
     Dosage: 350 MG (7X50MG), SINGLE
     Dates: start: 20120606, end: 20120606

REACTIONS (2)
  - OVERDOSE [None]
  - INTENTIONAL SELF-INJURY [None]
